FAERS Safety Report 7868156-6 (Version None)
Quarter: 2011Q4

REPORT INFORMATION
  Report Type: 
  Country: None (occurrence: None)
  Receive Date: 20111028
  Receipt Date: 20111024
  Transmission Date: 20120403
  Serious: Yes (Life-Threatening, Other)
  Sender: FDA-Public Use
  Company Number: CHPA2011US13233

PATIENT
  Age: 83 Year
  Sex: Female

DRUGS (1)
  1. PERDIEM OVERNIGHT RELIEF PILLS [Suspect]
     Indication: CONSTIPATION
     Dosage: 1 DF, QD
     Route: 048

REACTIONS (5)
  - URINARY TRACT INFECTION [None]
  - GAIT DISTURBANCE [None]
  - SCIATICA [None]
  - INCORRECT DRUG ADMINISTRATION DURATION [None]
  - SPINAL DISORDER [None]
